FAERS Safety Report 10405275 (Version 1)
Quarter: 2014Q3

REPORT INFORMATION
  Report Type: Report from Study
  Country: US (occurrence: US)
  Receive Date: 20140825
  Receipt Date: 20140825
  Transmission Date: 20150326
  Serious: Yes (Other)
  Sender: FDA-Public Use
  Company Number: US-ROCHE-1452140

PATIENT
  Age: 53 Year
  Sex: Female

DRUGS (2)
  1. RITUXAN [Suspect]
     Active Substance: RITUXIMAB
     Indication: GRANULOMATOSIS WITH POLYANGIITIS
     Route: 065
  2. RITUXAN [Suspect]
     Active Substance: RITUXIMAB
     Indication: MICROSCOPIC POLYANGIITIS

REACTIONS (16)
  - Red blood cell sedimentation rate increased [Unknown]
  - Glomerulonephritis [Unknown]
  - Asthenia [Unknown]
  - Rheumatoid factor increased [Unknown]
  - Haemoglobin increased [Unknown]
  - Sinusitis [Unknown]
  - Blood creatinine increased [Unknown]
  - Night sweats [Unknown]
  - Fatigue [Unknown]
  - C-reactive protein increased [Unknown]
  - Platelet count increased [Unknown]
  - Antineutrophil cytoplasmic antibody increased [Unknown]
  - Ear disorder [Unknown]
  - Hearing impaired [Unknown]
  - Antinuclear antibody increased [Unknown]
  - Full blood count increased [Unknown]
